FAERS Safety Report 14963746 (Version 1)
Quarter: 2018Q2

REPORT INFORMATION
  Report Type: Spontaneous
  Country: FR (occurrence: FR)
  Receive Date: 20180601
  Receipt Date: 20180601
  Transmission Date: 20180711
  Serious: Yes (Death, Hospitalization)
  Sender: FDA-Public Use
  Company Number: FR-TEVA-2018-FR-900624

PATIENT
  Age: 77 Year
  Sex: Male

DRUGS (3)
  1. AMOXICILLINE [Suspect]
     Active Substance: AMOXICILLIN
     Indication: ENDOCARDITIS BACTERIAL
     Route: 042
     Dates: start: 201512
  2. OXACILLINE SODIQUE [Suspect]
     Active Substance: OXACILLIN SODIUM
     Indication: ENDOCARDITIS BACTERIAL
     Route: 042
     Dates: start: 201512
  3. GENTAMICINE [Suspect]
     Active Substance: GENTAMICIN
     Indication: ENDOCARDITIS BACTERIAL
     Route: 042
     Dates: start: 201512

REACTIONS (2)
  - Cerebrovascular accident [Fatal]
  - Acute kidney injury [Recovered/Resolved]

NARRATIVE: CASE EVENT DATE: 201512
